FAERS Safety Report 7228840-4 (Version None)
Quarter: 2011Q1

REPORT INFORMATION
  Report Type: 
  Country: None (occurrence: None)
  Receive Date: 20110117
  Receipt Date: 20101123
  Transmission Date: 20110831
  Serious: Yes (Hospitalization, Other)
  Sender: FDA-Public Use
  Company Number: US-BAYER-201038078NA

PATIENT
  Sex: Female

DRUGS (5)
  1. YAZ [Suspect]
     Indication: CONTRACEPTION
     Dosage: UNK
     Dates: start: 20011101, end: 20041001
  2. YASMIN [Suspect]
     Indication: CONTRACEPTION
     Dosage: UNK
     Dates: start: 20011101, end: 20041001
  3. OCELLA [Suspect]
     Indication: ACNE
  4. IBUPROFEN [Concomitant]
     Dosage: UNK, PRN
  5. UNCODEABLE ^UNCLASSIFIABLE^ [Concomitant]
     Dosage: UNK
     Dates: start: 20010101

REACTIONS (2)
  - DEEP VEIN THROMBOSIS [None]
  - PAIN [None]
